FAERS Safety Report 7813964-0 (Version None)
Quarter: 2011Q4

REPORT INFORMATION
  Report Type: 
  Country: None (occurrence: None)
  Receive Date: 20111014
  Receipt Date: 20111010
  Transmission Date: 20120403
  Serious: Yes (Hospitalization)
  Sender: FDA-Public Use
  Company Number: GB-TYCO HEALTHCARE/MALLINCKRODT-T201102030

PATIENT
  Age: 21 Year
  Sex: Female

DRUGS (7)
  1. TRAMADOL HCL [Suspect]
     Dosage: 100 MG FOUR TIMES A DAY
  2. CYCLIZINE [Concomitant]
     Dosage: 50 MG THREE TIMES A DAY
  3. SUMATRIPTAN SUCCINATE [Concomitant]
     Dosage: 50 MG ONCE A DAY
  4. TRAMADOL HCL [Suspect]
     Indication: ABDOMINAL PAIN
     Dosage: 50 MG THREE TIMES A DAY
  5. OMEPRAZOLE [Concomitant]
     Dosage: 40 MG ONCE A DAY
  6. METOCLOPRAMIDE [Suspect]
     Indication: PRODUCT USED FOR UNKNOWN INDICATION
     Dosage: 10 MG THREE TIMES A DAY
  7. IBUPROFEN [Concomitant]
     Dosage: 400 MG THREE TIMES A DAY

REACTIONS (2)
  - SECONDARY ADRENOCORTICAL INSUFFICIENCY [None]
  - HYPERPROLACTINAEMIA [None]
